FAERS Safety Report 7754745-6 (Version None)
Quarter: 2011Q3

REPORT INFORMATION
  Report Type: 
  Country: None (occurrence: None)
  Receive Date: 20110916
  Receipt Date: 20110902
  Transmission Date: 20111222
  Serious: Yes (Other)
  Sender: FDA-Public Use
  Company Number: NL-MYLANLABS-2011S1018844

PATIENT

DRUGS (2)
  1. VINCRISTINE [Interacting]
     Indication: ACUTE LYMPHOCYTIC LEUKAEMIA
     Dosage: 1.5 MG/M2 EVERY WEEK FOR A TOTAL OF FOUR DOSES
     Route: 065
  2. FLUCONAZOLE [Suspect]
     Indication: FUNGAL INFECTION
     Route: 065

REACTIONS (3)
  - CONSTIPATION [None]
  - NEUROPATHY PERIPHERAL [None]
  - DRUG INTERACTION [None]
